FAERS Safety Report 9690516 (Version 2)
Quarter: 2014Q1

REPORT INFORMATION
  Report Type: Spontaneous
  Country: FR (occurrence: FR)
  Receive Date: 20131115
  Receipt Date: 20140115
  Transmission Date: 20141002
  Serious: Yes (Hospitalization)
  Sender: FDA-Public Use
  Company Number: FR-NOVOPROD-392373

PATIENT
  Age: 75 Year
  Sex: Male

DRUGS (9)
  1. NOVOMIX 30 FLEXPEN [Suspect]
     Indication: TYPE 1 DIABETES MELLITUS
     Dosage: 118 IU, QD
     Route: 065
  2. AVLOCARDYL                         /00030001/ [Concomitant]
     Route: 065
  3. PREVISCAN                          /00261401/ [Concomitant]
  4. ALLOPURINOL [Concomitant]
  5. DIFFU-K [Concomitant]
  6. FUROSEMIDE [Concomitant]
  7. IRBESARTAN [Concomitant]
     Route: 065
  8. METFORMINE [Concomitant]
     Route: 065
  9. FLUVASTATINE [Concomitant]
     Route: 065

REACTIONS (2)
  - Epilepsy [Unknown]
  - Hypoglycaemia [Unknown]
